FAERS Safety Report 19839542 (Version 1)
Quarter: 2021Q3

REPORT INFORMATION
  Report Type: Spontaneous
  Country: JP (occurrence: JP)
  Receive Date: 20210915
  Receipt Date: 20210915
  Transmission Date: 20211014
  Serious: Yes (Death)
  Sender: FDA-Public Use
  Company Number: JP-PFIZER INC-202101146972

PATIENT
  Age: 76 Year
  Sex: Female

DRUGS (1)
  1. BESPONSA [Suspect]
     Active Substance: INOTUZUMAB OZOGAMICIN
     Indication: ACUTE LYMPHOCYTIC LEUKAEMIA RECURRENT
     Dosage: 0.68 MG/M2, DAILY
     Route: 041
     Dates: start: 20210826

REACTIONS (3)
  - Subdural haemorrhage [Fatal]
  - Pulmonary haemorrhage [Fatal]
  - Coagulopathy [Fatal]

NARRATIVE: CASE EVENT DATE: 20210830
